FAERS Safety Report 5142252-9 (Version None)
Quarter: 2006Q4

REPORT INFORMATION
  Report Type: 
  Country: None (occurrence: None)
  Receive Date: 20061102
  Receipt Date: 20060607
  Transmission Date: 20070319
  Serious: Yes (Life-Threatening, Hospitalization, Disabling, Other)
  Sender: FDA-Public Use
  Company Number: US-MERCK-0606USA01686

PATIENT
  Age: 83 Year
  Sex: Male
  Weight: 90 kg

DRUGS (5)
  1. VYTORIN [Suspect]
     Indication: BLOOD CHOLESTEROL INCREASED
     Route: 048
     Dates: start: 20050825, end: 20060531
  2. COUMADIN [Concomitant]
     Indication: ATRIAL FIBRILLATION
     Route: 048
  3. GLIPIZIDE [Concomitant]
     Indication: DIABETES MELLITUS
     Route: 048
  4. LANOXIN [Concomitant]
     Indication: ATRIAL FIBRILLATION
     Route: 048
  5. CAPTOPRIL [Concomitant]
     Indication: BLOOD PRESSURE INCREASED
     Route: 048
     Dates: start: 20040910

REACTIONS (3)
  - CHEST DISCOMFORT [None]
  - DYSPNOEA [None]
  - HAEMOGLOBIN DECREASED [None]
